FAERS Safety Report 4280246-6 (Version None)
Quarter: 2004Q1

REPORT INFORMATION
  Report Type: 
  Country: None (occurrence: None)
  Receive Date: 20040123
  Receipt Date: 20040113
  Transmission Date: 20041129
  Serious: Yes (Hospitalization, Other)
  Sender: FDA-Public Use
  Company Number: 2003116004

PATIENT
  Age: 65 Year
  Sex: Female
  Weight: 29.0302 kg

DRUGS (8)
  1. LIPITOR [Suspect]
     Indication: BLOOD CHOLESTEROL INCREASED
     Dosage: 20 MG (DAILY), ORAL
     Route: 048
     Dates: start: 20030601
  2. LISINOPRIL [Concomitant]
  3. TOLTERODINE L-TARTRATE (TOTERODINE L-TARTRATE) [Concomitant]
  4. ESOMEPRAZOLE (ESOMEPRAZOLE) [Concomitant]
  5. FEXOFENADINE HYDROCHLORIDE [Concomitant]
  6. TOCOPHEROL CONCENTRATE CAP [Concomitant]
  7. CALCIUM (CALCIUM) [Concomitant]
  8. MULTIVITAMINS (ERGOCALCIFEROL/ASCORBIC ACID, FOLIC ACID, THIAMINE HYDR [Concomitant]

REACTIONS (7)
  - BREAST ABSCESS [None]
  - CAROTID ARTERY OCCLUSION [None]
  - CONDITION AGGRAVATED [None]
  - INFECTION [None]
  - LOSS OF CONSCIOUSNESS [None]
  - MASTITIS [None]
  - VISION BLURRED [None]
